FAERS Safety Report 5815051-X (Version None)
Quarter: 2008Q3

REPORT INFORMATION
  Report Type: 
  Country: None (occurrence: None)
  Receive Date: 20080718
  Receipt Date: 20080707
  Transmission Date: 20090109
  Serious: Yes (Hospitalization, Other)
  Sender: FDA-Public Use
  Company Number: B0529653A

PATIENT
  Age: 38 Year
  Sex: Female

DRUGS (4)
  1. AZATHIOPRINE [Suspect]
     Dosage: 50MG TWICE PER DAY
     Route: 065
  2. PREDNISONE TAB [Suspect]
     Dosage: 10MG PER DAY
  3. ALBENDAZOLE [Suspect]
     Dosage: 400MG TWICE PER DAY
     Route: 048
  4. HYDROXYCHLOROQUINE SULFATE [Concomitant]

REACTIONS (21)
  - ABDOMINAL PAIN [None]
  - BACTERIA URINE IDENTIFIED [None]
  - CHEST X-RAY ABNORMAL [None]
  - CUSHINGOID [None]
  - DRUG INTOLERANCE [None]
  - DUODENITIS [None]
  - ENTEROCOCCAL INFECTION [None]
  - ESCHERICHIA SEPSIS [None]
  - HAEMATEMESIS [None]
  - HYPOTENSION [None]
  - INFLAMMATION [None]
  - OCCULT BLOOD POSITIVE [None]
  - OESOPHAGITIS [None]
  - PYREXIA [None]
  - RALES [None]
  - RASH ERYTHEMATOUS [None]
  - RESPIRATORY DISTRESS [None]
  - STRONGYLOIDIASIS [None]
  - TACHYCARDIA [None]
  - THERAPEUTIC RESPONSE UNEXPECTED [None]
  - THROMBOCYTOPENIA [None]
